FAERS Safety Report 12348924 (Version 3)
Quarter: 2017Q2

REPORT INFORMATION
  Report Type: Spontaneous
  Country: DK (occurrence: DK)
  Receive Date: 20160509
  Receipt Date: 20170410
  Transmission Date: 20170830
  Serious: Yes (Hospitalization, Disabling, Other)
  Sender: FDA-Public Use
  Company Number: DK-ELI_LILLY_AND_COMPANY-DK201604010660

PATIENT
  Age: 44 Year
  Sex: Female
  Weight: 54 kg

DRUGS (3)
  1. CYMBALTA [Suspect]
     Active Substance: DULOXETINE HYDROCHLORIDE
     Indication: DEPRESSION
     Dosage: UNK, UNKNOWN
     Route: 065
  2. CYMBALTA [Suspect]
     Active Substance: DULOXETINE HYDROCHLORIDE
     Dosage: UNK, UNKNOWN
     Route: 065
  3. CYMBALTA [Suspect]
     Active Substance: DULOXETINE HYDROCHLORIDE
     Indication: FIBROMYALGIA
     Dosage: 30 MG, QD
     Route: 048
     Dates: start: 20090401, end: 20150819

REACTIONS (28)
  - Drug withdrawal convulsions [Recovering/Resolving]
  - Dizziness [Recovering/Resolving]
  - Drug withdrawal syndrome [Not Recovered/Not Resolved]
  - Panic disorder [Unknown]
  - Cerebral disorder [Unknown]
  - Off label use [Unknown]
  - Hemiplegia [Unknown]
  - Loss of personal independence in daily activities [Unknown]
  - Heart rate increased [Unknown]
  - Postmenopausal haemorrhage [Unknown]
  - Blood prolactin increased [Recovering/Resolving]
  - Palpitations [Unknown]
  - Fear [Unknown]
  - Ulcer haemorrhage [Unknown]
  - Headache [Recovering/Resolving]
  - Speech disorder [Unknown]
  - Neoplasm [Unknown]
  - Micturition urgency [Unknown]
  - Nausea [Unknown]
  - Hypertension [Recovering/Resolving]
  - Hypohidrosis [Recovering/Resolving]
  - Insomnia [Recovering/Resolving]
  - Paraesthesia [Unknown]
  - Decreased appetite [Recovering/Resolving]
  - Malaise [Unknown]
  - Vomiting [Unknown]
  - Anxiety [Unknown]
  - Blood cholesterol increased [Unknown]

NARRATIVE: CASE EVENT DATE: 2015
